FAERS Safety Report 8835953 (Version 7)
Quarter: 2013Q1

REPORT INFORMATION
  Report Type: Spontaneous
  Country: US (occurrence: US)
  Receive Date: 20121011
  Receipt Date: 20130320
  Transmission Date: 20140127
  Serious: Yes (Other)
  Sender: FDA-Public Use
  Company Number: US-MERCK-1210USA002266

PATIENT
  Sex: Male

DRUGS (2)
  1. PEGINTRON [Suspect]
     Indication: HEPATITIS C
     Dosage: UNK
     Route: 058
     Dates: start: 20120925, end: 20130226
  2. REBETOL [Suspect]
     Indication: HEPATITIS C
     Dosage: UNK
     Route: 048
     Dates: start: 20120925, end: 20130226

REACTIONS (29)
  - Pollakiuria [Unknown]
  - Chromaturia [Unknown]
  - Fatigue [Unknown]
  - Malaise [Unknown]
  - Pollakiuria [Unknown]
  - Abdominal pain [Unknown]
  - Decreased appetite [Unknown]
  - Malaise [Unknown]
  - Nervousness [Unknown]
  - Memory impairment [Unknown]
  - Sinusitis [Unknown]
  - Epistaxis [Unknown]
  - Memory impairment [Unknown]
  - Nail discolouration [Unknown]
  - Hypoaesthesia [Unknown]
  - Peripheral coldness [Unknown]
  - Polyuria [Unknown]
  - Glossodynia [Unknown]
  - Abdominal pain upper [Unknown]
  - Back pain [Unknown]
  - Somnolence [Unknown]
  - Sciatica [Unknown]
  - Sciatica [Unknown]
  - Neoplasm malignant [Unknown]
  - Chills [Unknown]
  - Injection site reaction [Unknown]
  - Back pain [Unknown]
  - Decreased appetite [Unknown]
  - Weight decreased [Unknown]
